FAERS Safety Report 12444258 (Version 1)
Quarter: 2016Q2

REPORT INFORMATION
  Report Type: Spontaneous
  Country: US (occurrence: US)
  Receive Date: 20160607
  Receipt Date: 20160607
  Transmission Date: 20160815
  Serious: No
  Sender: FDA-Public Use
  Company Number: US-SA-2016SA091318

PATIENT
  Age: 53 Year
  Sex: Female

DRUGS (2)
  1. TOUJEO [Suspect]
     Active Substance: INSULIN GLARGINE
     Indication: TYPE 2 DIABETES MELLITUS
     Dosage: DOSE:38 UNIT(S)
     Route: 065
     Dates: start: 20160301, end: 20160430
  2. SOLOSTAR [Concomitant]
     Active Substance: DEVICE
     Indication: TYPE 2 DIABETES MELLITUS
     Dates: start: 20160301, end: 20160430

REACTIONS (19)
  - Confusional state [Unknown]
  - Swollen tongue [Unknown]
  - Joint swelling [Unknown]
  - Fatigue [Unknown]
  - Speech disorder [Unknown]
  - Vision blurred [Unknown]
  - Weight increased [Unknown]
  - Headache [Unknown]
  - Fluid retention [Unknown]
  - Lip swelling [Unknown]
  - Swelling face [Unknown]
  - Product use issue [Unknown]
  - Dysphonia [Unknown]
  - Dyspnoea [Unknown]
  - Chest discomfort [Unknown]
  - Night sweats [Unknown]
  - Disorientation [Unknown]
  - Arthralgia [Unknown]
  - Dizziness [Unknown]
